FAERS Safety Report 21731725 (Version 1)
Quarter: 2022Q4

REPORT INFORMATION
  Report Type: Report from Study
  Country: US (occurrence: US)
  Receive Date: 20221215
  Receipt Date: 20221215
  Transmission Date: 20230113
  Serious: No
  Sender: FDA-Public Use
  Company Number: US-002147023-NVSC2022US288882

PATIENT
  Sex: Male

DRUGS (1)
  1. ILARIS [Suspect]
     Active Substance: CANAKINUMAB
     Indication: Product used for unknown indication
     Dosage: 50 MG, QMO
     Route: 058

REACTIONS (4)
  - Arthralgia [Unknown]
  - Muscle contracture [Unknown]
  - Joint range of motion decreased [Unknown]
  - Treatment failure [Unknown]
